FAERS Safety Report 9026054 (Version 1)
Quarter: 2013Q1

REPORT INFORMATION
  Report Type: Spontaneous
  Country: US (occurrence: None)
  Receive Date: 20130107
  Receipt Date: 20130107
  Transmission Date: 20140127
  Serious: Yes (Hospitalization)
  Sender: FDA-Public Use
  Company Number: UTC-027229

PATIENT
  Age: 65 Year
  Sex: Male

DRUGS (4)
  1. TYVASO (6 MICROGRAM, AEROSOL FOR INHALATION) (TREPROSTINIL SODIUM) [Suspect]
     Indication: PULMONARY ARTERIAL HYPERTENSION
     Dosage: 216 MCG (54 MCG, 4 IN 1 D), INHALATION
     Dates: start: 20121127
  2. PROCARDIA (NIFEDIPINE) (UNKNOWN) (NIFEDIPINE) [Suspect]
     Indication: PRODUCT USED FOR UNKNOWN INDICATION
  3. REVATIO (SILDENAFIL CITRATE) (UNKNOWN) (SILDENAFIL) [Suspect]
  4. ASA (ACETYLSALICYLIC ACID) UNKNOWN) [Concomitant]

REACTIONS (2)
  - Hypotension [None]
  - Wrong technique in drug usage process [None]
